FAERS Safety Report 9350330 (Version 1)
Quarter: 2013Q2

REPORT INFORMATION
  Report Type: Report from Study
  Country: CA (occurrence: CA)
  Receive Date: 20130617
  Receipt Date: 20130617
  Transmission Date: 20140414
  Serious: Yes (Hospitalization)
  Sender: FDA-Public Use
  Company Number: CA-JNJFOC-20130607067

PATIENT
  Age: 52 Year
  Sex: Male
  Weight: 91 kg

DRUGS (17)
  1. REMICADE [Suspect]
     Indication: CROHN^S DISEASE
     Route: 042
     Dates: start: 201001
  2. PREVACID [Concomitant]
     Route: 065
  3. VIT-D [Concomitant]
     Route: 065
  4. CALCIUM [Concomitant]
     Route: 065
  5. SALOFALK [Concomitant]
     Route: 065
  6. AZATHIOPRINE [Concomitant]
     Route: 065
  7. MULTI VIT [Concomitant]
     Route: 065
  8. HYDROXYZINE [Concomitant]
     Route: 065
  9. SYMBICORT [Concomitant]
     Route: 065
  10. FERROUS GLUCONATE [Concomitant]
     Route: 065
  11. CLONAZEPAM [Concomitant]
     Route: 065
  12. BUSCOPAN [Concomitant]
     Route: 065
  13. THEOPHYLLINE [Concomitant]
     Route: 065
  14. GRAVOL [Concomitant]
     Route: 065
  15. VITAMIN B12 [Concomitant]
     Route: 065
  16. PALIPERIDONE [Concomitant]
     Route: 065
  17. FOLIC ACID [Concomitant]
     Route: 065

REACTIONS (2)
  - Overdose [Unknown]
  - Medication error [Unknown]
